FAERS Safety Report 18180212 (Version 1)
Quarter: 2020Q3

REPORT INFORMATION
  Report Type: Spontaneous
  Country: US (occurrence: US)
  Receive Date: 20200821
  Receipt Date: 20200821
  Transmission Date: 20201103
  Serious: No
  Sender: FDA-Public Use
  Company Number: US-ELI_LILLY_AND_COMPANY-US202008008109

PATIENT
  Sex: Male

DRUGS (7)
  1. BASAGLAR [Suspect]
     Active Substance: INSULIN GLARGINE
     Dosage: 34 U, UNKNOWN
     Route: 058
  2. BASAGLAR [Suspect]
     Active Substance: INSULIN GLARGINE
     Indication: TYPE 2 DIABETES MELLITUS
     Dosage: 34 U, UNKNOWN
     Route: 058
     Dates: start: 2015
  3. BASAGLAR [Suspect]
     Active Substance: INSULIN GLARGINE
     Dosage: 34 U, UNKNOWN
     Route: 058
  4. BASAGLAR [Suspect]
     Active Substance: INSULIN GLARGINE
     Dosage: 34 U, UNKNOWN
     Route: 058
  5. BASAGLAR [Suspect]
     Active Substance: INSULIN GLARGINE
     Indication: TYPE 2 DIABETES MELLITUS
     Dosage: 34 U, UNKNOWN
     Route: 058
     Dates: start: 2015
  6. BASAGLAR [Suspect]
     Active Substance: INSULIN GLARGINE
     Dosage: 34 U, UNKNOWN
     Route: 058
  7. BASAGLAR [Suspect]
     Active Substance: INSULIN GLARGINE
     Dosage: 34 U, UNKNOWN
     Route: 058

REACTIONS (2)
  - Visual impairment [Unknown]
  - Blood glucose increased [Unknown]
